FAERS Safety Report 9315110 (Version 1)
Quarter: 2013Q2

REPORT INFORMATION
  Report Type: Spontaneous
  Country: US (occurrence: US)
  Receive Date: 20130529
  Receipt Date: 20130529
  Transmission Date: 20140414
  Serious: No
  Sender: FDA-Public Use
  Company Number: US-MYLANLABS-2012S1023456

PATIENT
  Age: 33 Year
  Sex: Male

DRUGS (1)
  1. BUPROPION HYDROCHLORIDE TABLETS [Suspect]
     Route: 048
     Dates: start: 201209, end: 201210

REACTIONS (1)
  - Paraesthesia oral [Recovered/Resolved]
